FAERS Safety Report 6383255-6 (Version None)
Quarter: 2009Q3

REPORT INFORMATION
  Report Type: 
  Country: None (occurrence: None)
  Receive Date: 20090929
  Receipt Date: 20090918
  Transmission Date: 20100115
  Serious: Yes (Hospitalization)
  Sender: FDA-Public Use
  Company Number: 8052158

PATIENT
  Age: 60 Year
  Sex: Female
  Weight: 94.4 kg

DRUGS (10)
  1. CIMZIA [Suspect]
     Indication: CROHN'S DISEASE
     Dosage: 400 MG /M SC
     Route: 058
     Dates: start: 20081103, end: 20090811
  2. JANUVIA [Concomitant]
  3. FUROSEMIDE [Concomitant]
  4. NEXIUM [Concomitant]
  5. KLOR-CON [Concomitant]
  6. TRAZODONE HCL [Concomitant]
  7. ATENOLOL [Concomitant]
  8. ACTONEL [Concomitant]
  9. FOLIC ACID [Concomitant]
  10. CALCIUM [Concomitant]

REACTIONS (6)
  - ABDOMINAL PAIN UPPER [None]
  - BILIARY DILATATION [None]
  - JAUNDICE [None]
  - LUNG NEOPLASM [None]
  - NAUSEA [None]
  - PANCREATIC NEOPLASM [None]
